FAERS Safety Report 10922017 (Version 1)
Quarter: 2015Q1

REPORT INFORMATION
  Report Type: Spontaneous
  Country: US (occurrence: US)
  Receive Date: 20150317
  Receipt Date: 20150317
  Transmission Date: 20150721
  Serious: No
  Sender: FDA-Public Use
  Company Number: US-009507513-1503USA002579

PATIENT
  Age: 74 Year
  Sex: Male

DRUGS (1)
  1. DULERA [Suspect]
     Active Substance: FORMOTEROL FUMARATE DIHYDRATE\MOMETASONE FUROATE
     Indication: COUGH
     Dosage: 2 DF, BID (2 PUFFS TWICE A DAY)
     Dates: start: 20150210

REACTIONS (2)
  - Nasal inflammation [Unknown]
  - Sinus congestion [Unknown]
